FAERS Safety Report 6812163-9 (Version None)
Quarter: 2010Q3

REPORT INFORMATION
  Report Type: 
  Country: None (occurrence: None)
  Receive Date: 20100701
  Receipt Date: 20100512
  Transmission Date: 20110219
  Serious: No
  Sender: FDA-Public Use
  Company Number: US-ABBOTT-10P-163-0643762-00

PATIENT
  Age: 29 Year
  Sex: Female

DRUGS (3)
  1. RITONAVIR [Suspect]
     Indication: HIV INFECTION
     Route: 048
     Dates: start: 20090803, end: 20091228
  2. FOSAMPRENAVIR CALCIUM [Suspect]
     Indication: HIV INFECTION
     Route: 048
     Dates: start: 20090803, end: 20091228
  3. ABACAVIR SULFATE/LAMIVUDINE [Suspect]
     Indication: HIV INFECTION
     Route: 048
     Dates: start: 20090803, end: 20091228

REACTIONS (1)
  - HERPES ZOSTER [None]
